FAERS Safety Report 16746913 (Version 1)
Quarter: 2019Q3

REPORT INFORMATION
  Report Type: Spontaneous
  Country: DE (occurrence: DE)
  Receive Date: 20190827
  Receipt Date: 20190827
  Transmission Date: 20191005
  Serious: Yes (Hospitalization, Other)
  Sender: FDA-Public Use
  Company Number: DE-JNJFOC-20190831290

PATIENT
  Age: 37 Year
  Sex: Male
  Weight: 96 kg

DRUGS (1)
  1. RIVAROXABAN [Suspect]
     Active Substance: RIVAROXABAN
     Indication: DEEP VEIN THROMBOSIS
     Dosage: 20 MG
     Route: 048
     Dates: start: 2017, end: 201810

REACTIONS (7)
  - Dyspnoea exertional [Unknown]
  - Social problem [Unknown]
  - Peripheral swelling [Unknown]
  - Pain [Unknown]
  - Post thrombotic syndrome [Unknown]
  - Pain in extremity [Unknown]
  - Impaired work ability [Unknown]

NARRATIVE: CASE EVENT DATE: 201810
